FAERS Safety Report 13807994 (Version 2)
Quarter: 2018Q1

REPORT INFORMATION
  Report Type: Spontaneous
  Country: US (occurrence: US)
  Receive Date: 20170728
  Receipt Date: 20180124
  Transmission Date: 20180508
  Serious: Yes (Life-Threatening, Hospitalization, Other)
  Sender: FDA-Public Use
  Company Number: US-ASTRAZENECA-2017SE76892

PATIENT
  Age: 18197 Day
  Sex: Male

DRUGS (7)
  1. BRILINTA [Suspect]
     Active Substance: TICAGRELOR
     Indication: STENT PLACEMENT
     Route: 048
     Dates: start: 20170717
  2. LISINOPRIL. [Suspect]
     Active Substance: LISINOPRIL
     Dosage: 20.0MG UNKNOWN
     Route: 048
     Dates: start: 20170714
  3. METOPROLOL SUCCINATE. [Suspect]
     Active Substance: METOPROLOL SUCCINATE
     Route: 048
     Dates: start: 20170714
  4. BRILINTA [Suspect]
     Active Substance: TICAGRELOR
     Indication: STENT PLACEMENT
     Route: 048
     Dates: start: 20170714
  5. LIPITOR [Concomitant]
     Active Substance: ATORVASTATIN CALCIUM
     Route: 048
     Dates: start: 20170714
  6. ASPIRIN. [Concomitant]
     Active Substance: ASPIRIN
     Route: 048
  7. NITROGLYCERIN. [Concomitant]
     Active Substance: NITROGLYCERIN
     Dosage: 0.4MG AS REQUIRED
     Route: 060

REACTIONS (5)
  - Cardiac arrest [Not Recovered/Not Resolved]
  - Vascular stent occlusion [Not Recovered/Not Resolved]
  - Ventricular tachycardia [Unknown]
  - Pneumonia aspiration [Unknown]
  - Ejection fraction decreased [Unknown]

NARRATIVE: CASE EVENT DATE: 20170723
